FAERS Safety Report 9354539 (Version 2)
Quarter: 2013Q4

REPORT INFORMATION
  Report Type: Report from Study
  Country: CA (occurrence: CA)
  Receive Date: 20130618
  Receipt Date: 20131009
  Transmission Date: 20140711
  Serious: Yes (Other)
  Sender: FDA-Public Use
  Company Number: CA-UCBSA-084681

PATIENT
  Age: 57 Year
  Sex: Female
  Weight: 60.15 kg

DRUGS (2)
  1. CIMZIA [Suspect]
     Indication: RHEUMATOID ARTHRITIS
     Route: 058
     Dates: start: 20100529
  2. HUMIRA [Concomitant]
     Indication: RHEUMATOID ARTHRITIS
     Route: 058
     Dates: start: 20100216, end: 201005

REACTIONS (3)
  - Herpes zoster [Not Recovered/Not Resolved]
  - Varicella [Recovered/Resolved]
  - Iritis [Recovered/Resolved]
